FAERS Safety Report 5788068-1 (Version None)
Quarter: 2008Q2

REPORT INFORMATION
  Report Type: 
  Country: None (occurrence: None)
  Receive Date: 20080625
  Receipt Date: 20080617
  Transmission Date: 20081010
  Serious: Yes (Death)
  Sender: FDA-Public Use
  Company Number: JP-ABBOTT-08P-087-0458903-00

PATIENT
  Age: 82 Year
  Sex: Male

DRUGS (5)
  1. LEUPLIN SR FOR INJECTION KIT [Suspect]
     Indication: PROSTATE CANCER STAGE II
     Route: 058
     Dates: start: 20060228, end: 20071009
  2. LEUPRORELIN ACETATE 3.75 MG [Suspect]
     Indication: PROSTATE CANCER
     Dates: end: 20060131
  3. BICALUTAMIDE [Concomitant]
     Indication: PROSTATE CANCER STAGE II
     Route: 048
     Dates: start: 20060121, end: 20080104
  4. ALDIOXA [Concomitant]
     Indication: GASTRITIS
     Route: 048
     Dates: start: 20060121, end: 20070807
  5. TEPRENONE [Concomitant]
     Indication: GASTRITIS
     Route: 048
     Dates: start: 20070807, end: 20080104

REACTIONS (1)
  - CARDIAC FAILURE [None]
